FAERS Safety Report 19276484 (Version 3)
Quarter: 2022Q1

REPORT INFORMATION
  Report Type: Spontaneous
  Country: US (occurrence: None)
  Receive Date: 20210520
  Receipt Date: 20220113
  Transmission Date: 20220423
  Serious: Yes (Other)
  Sender: FDA-Public Use
  Company Number: 2021A420568

PATIENT
  Age: 17537 Day
  Sex: Female
  Weight: 89.8 kg

DRUGS (40)
  1. NEXIUM [Suspect]
     Active Substance: ESOMEPRAZOLE MAGNESIUM
     Indication: Gastrooesophageal reflux disease
     Route: 048
     Dates: start: 2008, end: 2017
  2. NEXIUM [Suspect]
     Active Substance: ESOMEPRAZOLE MAGNESIUM
     Indication: Gastrooesophageal reflux disease
     Dosage: ESOMEPRAZOLE
     Route: 065
  3. PRILOSEC [Suspect]
     Active Substance: OMEPRAZOLE MAGNESIUM
     Indication: Gastrooesophageal reflux disease
     Route: 048
     Dates: start: 2008, end: 2017
  4. PRILOSEC [Suspect]
     Active Substance: OMEPRAZOLE MAGNESIUM
     Indication: Gastrooesophageal reflux disease
     Dosage: OMEPRAZOLE
     Route: 065
  5. PRILOSEC OTC [Suspect]
     Active Substance: OMEPRAZOLE MAGNESIUM
     Indication: Gastrooesophageal reflux disease
     Route: 048
     Dates: start: 2008, end: 2017
  6. VOLTAREN [Concomitant]
     Active Substance: DICLOFENAC SODIUM
     Indication: Infection
     Dates: start: 20190315, end: 20190322
  7. SULFAMETHOXAZOLE\TRIMETHOPRIM [Concomitant]
     Active Substance: SULFAMETHOXAZOLE\TRIMETHOPRIM
     Indication: Infection
     Dates: start: 20090724, end: 20191025
  8. MELOXICAM [Concomitant]
     Active Substance: MELOXICAM
     Indication: Infection
     Dates: start: 20170822, end: 20180109
  9. AZITHROMYCIN [Concomitant]
     Active Substance: AZITHROMYCIN
     Indication: Infection
     Dates: start: 20111212, end: 20180122
  10. SIMVASTATIN [Concomitant]
     Active Substance: SIMVASTATIN
     Indication: Hyperlipidaemia
     Dates: start: 20161118, end: 20161223
  11. TRAMADOL [Concomitant]
     Active Substance: TRAMADOL
     Indication: Pain
     Dates: start: 20120627, end: 20170223
  12. TRAMADOL [Concomitant]
     Active Substance: TRAMADOL
     Indication: Inflammation
     Dates: start: 20120627, end: 20170223
  13. DOXYCYCLINE [Concomitant]
     Active Substance: DOXYCYCLINE
     Indication: Infection
     Dates: start: 20130716, end: 20160425
  14. CIPROFLOXACIN [Concomitant]
     Active Substance: CIPROFLOXACIN
     Indication: Infection
     Dates: start: 20140821, end: 20150422
  15. NAPROXEN [Concomitant]
     Active Substance: NAPROXEN
     Indication: Pain
     Dates: start: 20120627, end: 20120711
  16. LEVAQUIN [Concomitant]
     Active Substance: LEVOFLOXACIN
     Indication: Infection
     Dates: start: 20090323, end: 20090501
  17. FAMOTIDINE [Concomitant]
     Active Substance: FAMOTIDINE
     Dates: start: 20181011, end: 20181021
  18. CLINDAMYCIN [Concomitant]
     Active Substance: CLINDAMYCIN
  19. VITAMIN D2 [Concomitant]
     Active Substance: ERGOCALCIFEROL
  20. TRIAMCINOLONE [Concomitant]
     Active Substance: TRIAMCINOLONE
  21. ACETAMINOPHEN\HYDROCODONE [Concomitant]
     Active Substance: ACETAMINOPHEN\HYDROCODONE
  22. HYDROXYZINE [Concomitant]
     Active Substance: HYDROXYZINE HYDROCHLORIDE
  23. MIRTAZAPINE [Concomitant]
     Active Substance: MIRTAZAPINE
  24. OXYBUTYNIN [Concomitant]
     Active Substance: OXYBUTYNIN
  25. LIDOCAINE [Concomitant]
     Active Substance: LIDOCAINE
  26. GOLYTELY [Concomitant]
     Active Substance: POLYETHYLENE GLYCOL 3350\POTASSIUM CHLORIDE\SODIUM BICARBONATE\SODIUM CHLORIDE\SODIUM SULFATE
  27. ULTRAM [Concomitant]
     Active Substance: TRAMADOL HYDROCHLORIDE
  28. DOXYCYCLINE [Concomitant]
     Active Substance: DOXYCYCLINE
  29. NORTRIPTYLINE [Concomitant]
     Active Substance: NORTRIPTYLINE
  30. PERCOCET [Concomitant]
     Active Substance: ACETAMINOPHEN\OXYCODONE HYDROCHLORIDE
  31. CLEOCIN [Concomitant]
     Active Substance: CLINDAMYCIN PHOSPHATE
  32. NEURONTIN [Concomitant]
     Active Substance: GABAPENTIN
  33. DIFLUCAN [Concomitant]
     Active Substance: FLUCONAZOLE
  34. AMBIEN [Concomitant]
     Active Substance: ZOLPIDEM TARTRATE
  35. KENALOG [Concomitant]
     Active Substance: TRIAMCINOLONE ACETONIDE
  36. ZOFRAN [Concomitant]
     Active Substance: ONDANSETRON HYDROCHLORIDE
  37. ALBUTEROL [Concomitant]
     Active Substance: ALBUTEROL
  38. ATARAX [Concomitant]
     Active Substance: HYDROXYZINE HYDROCHLORIDE
  39. BACTROBAN [Concomitant]
     Active Substance: MUPIROCIN\MUPIROCIN CALCIUM
  40. MINERIN [Concomitant]

REACTIONS (4)
  - Chronic kidney disease [Not Recovered/Not Resolved]
  - End stage renal disease [Unknown]
  - Acute kidney injury [Unknown]
  - Renal failure [Unknown]

NARRATIVE: CASE EVENT DATE: 20090827
